FAERS Safety Report 17148994 (Version 1)
Quarter: 2019Q4

REPORT INFORMATION
  Report Type: Spontaneous
  Country: US (occurrence: US)
  Receive Date: 20191213
  Receipt Date: 20191213
  Transmission Date: 20200122
  Serious: No
  Sender: FDA-Public Use
  Company Number: US-SHIRE-US201942445

PATIENT
  Age: 34 Year
  Sex: Female

DRUGS (1)
  1. FIRAZYR [Suspect]
     Active Substance: ICATIBANT ACETATE
     Indication: HEREDITARY ANGIOEDEMA
     Dosage: UNK, AS REQ^D
     Route: 058
     Dates: start: 20181214

REACTIONS (4)
  - Cough [Unknown]
  - Inappropriate schedule of product administration [Unknown]
  - Skin discolouration [Unknown]
  - Speech disorder [Unknown]

NARRATIVE: CASE EVENT DATE: 20191202
